FAERS Safety Report 25520405 (Version 6)
Quarter: 2025Q4

REPORT INFORMATION
  Report Type: Report from Study
  Country: KR (occurrence: KR)
  Receive Date: 20250704
  Receipt Date: 20251110
  Transmission Date: 20260117
  Serious: Yes (Other)
  Sender: ASTELLAS
  Company Number: KR-ASTELLAS-2025-AER-036047

PATIENT
  Age: 69 Year
  Sex: Male
  Weight: 64 kg

DRUGS (49)
  1. PADCEV [Suspect]
     Active Substance: ENFORTUMAB VEDOTIN-EJFV
     Indication: Transitional cell carcinoma metastatic
     Dosage: 1.25 MG/KG, TOTAL DOSE 80MG, CYCLE 1
     Route: 042
     Dates: start: 20240911
  2. PADCEV [Suspect]
     Active Substance: ENFORTUMAB VEDOTIN-EJFV
     Dosage: 1.25 MG/KG, TOTAL DOSE 80MG, CYCLE 1
     Route: 042
     Dates: start: 20240919
  3. PADCEV [Suspect]
     Active Substance: ENFORTUMAB VEDOTIN-EJFV
     Dosage: 1 MG/KG, TOTAL DOSE 60MG, CYCLE 1
     Route: 042
     Dates: start: 20241017
  4. TAMLOSTAR SR [Concomitant]
     Indication: Urinary tract disorder prophylaxis
     Route: 048
     Dates: start: 20240901, end: 20241007
  5. ZOLPIDEM TARTRATE [Concomitant]
     Active Substance: ZOLPIDEM TARTRATE
     Indication: Prophylaxis
     Route: 048
     Dates: start: 20241008, end: 20241016
  6. DIABEX [Concomitant]
     Active Substance: METFORMIN HYDROCHLORIDE
     Indication: Diabetes mellitus
     Route: 048
     Dates: start: 20221206
  7. DAEHWA MAGNESIUM OXIDE [Concomitant]
     Indication: Constipation
     Route: 048
     Dates: start: 20221208
  8. REBAMIPIDE [Concomitant]
     Active Substance: REBAMIPIDE
     Indication: Gastritis prophylaxis
     Route: 048
     Dates: start: 20221221
  9. URSODIOL [Concomitant]
     Active Substance: URSODIOL
     Indication: Prophylaxis
     Route: 048
     Dates: start: 20221221, end: 20240926
  10. LANSOPRAZOLE [Concomitant]
     Active Substance: LANSOPRAZOLE
     Indication: Gastritis prophylaxis
     Route: 048
     Dates: start: 20230109, end: 20241004
  11. LINAGLIPTIN [Concomitant]
     Active Substance: LINAGLIPTIN
     Indication: Diabetes mellitus
     Route: 048
     Dates: start: 20230119
  12. NEWRICA [Concomitant]
     Indication: Neuropathy peripheral
     Dosage: 75 MG
     Route: 048
     Dates: start: 20230807, end: 20240919
  13. PROBIOTICS NOS [Concomitant]
     Active Substance: PROBIOTICS NOS
     Indication: Constipation
     Route: 048
     Dates: start: 20231201, end: 20241004
  14. ACETPHEN PREMIX [Concomitant]
     Indication: Pyrexia
     Route: 042
     Dates: start: 20240831, end: 20240903
  15. ACETPHEN PREMIX [Concomitant]
     Indication: Pain prophylaxis
     Dosage: 1 BAG
     Route: 042
     Dates: start: 20240911, end: 20240912
  16. ACETPHEN PREMIX [Concomitant]
     Route: 042
     Dates: start: 20241017, end: 20241017
  17. POSPENEM [Concomitant]
     Indication: C-reactive protein increased
     Dosage: 3 VIALS
     Route: 042
     Dates: start: 20240831, end: 20240919
  18. POSPENEM [Concomitant]
     Route: 042
     Dates: start: 20240926, end: 20241007
  19. PANTOPRAZOLE SODIUM [Concomitant]
     Active Substance: PANTOPRAZOLE SODIUM
     Indication: Prophylaxis against gastrointestinal ulcer
     Route: 042
     Dates: start: 20240831, end: 20240903
  20. PANTOPRAZOLE SODIUM [Concomitant]
     Active Substance: PANTOPRAZOLE SODIUM
     Indication: Gastritis prophylaxis
     Route: 042
     Dates: start: 20241004, end: 20241007
  21. BORYUNGBIO ASTRIX [Concomitant]
     Indication: Cerebral infarction
     Route: 048
     Dates: start: 20240901, end: 20240926
  22. BORYUNGBIO ASTRIX [Concomitant]
     Route: 048
     Dates: start: 20241017, end: 20241018
  23. BEARTORIN [Concomitant]
     Indication: Prophylaxis
     Dosage: 10/20
     Route: 048
     Dates: start: 20240901, end: 20241018
  24. ARTEMISIA ARGYI LEAF [Concomitant]
     Active Substance: ARTEMISIA ARGYI LEAF
     Indication: Gastritis prophylaxis
     Route: 048
     Dates: start: 20240901, end: 20240926
  25. ARTEMISIA ARGYI LEAF [Concomitant]
     Active Substance: ARTEMISIA ARGYI LEAF
     Route: 048
     Dates: start: 20241017, end: 20241018
  26. HEPAVIA [Concomitant]
     Indication: Nutritional supplementation
     Dosage: HEPAVIA INJ 500ML (BTL)
     Route: 042
     Dates: start: 20240901, end: 20240902
  27. HEPAVIA [Concomitant]
     Dosage: BOTTLE
     Route: 042
     Dates: start: 20240920, end: 20240920
  28. HEPAVIA [Concomitant]
     Dosage: 1 BOTTLE
     Route: 042
     Dates: start: 20241004, end: 20241007
  29. VITAMINS [Concomitant]
     Active Substance: VITAMINS
     Indication: Vitamin supplementation
     Dosage: VIAL
     Route: 042
     Dates: start: 20240901, end: 20240901
  30. ALGIN N [Concomitant]
     Indication: Gastritis prophylaxis
     Dosage: 20 ML;
     Route: 048
     Dates: start: 20240902
  31. NAXEN-F [Concomitant]
     Indication: Pyrexia
     Route: 048
     Dates: start: 20240902, end: 20240925
  32. PENIRAMIN [Concomitant]
     Indication: Prophylaxis
     Route: 042
     Dates: start: 20240902, end: 20240902
  33. PENIRAMIN [Concomitant]
     Route: 042
     Dates: start: 20240925, end: 20240925
  34. PENIRAMIN [Concomitant]
     Route: 042
     Dates: start: 20240927, end: 20240927
  35. PENIRAMIN [Concomitant]
     Route: 042
     Dates: start: 20240929, end: 20240929
  36. PHOSTEN [Concomitant]
     Indication: Mineral supplementation
     Dosage: VIAL (AMPULE),
     Route: 042
     Dates: start: 20240912, end: 20240912
  37. TAPOCIN [Concomitant]
     Indication: Infection prophylaxis
     Dosage: VIAL
     Route: 042
     Dates: start: 20240912, end: 20241007
  38. INNO.N Ceftriaxone [Concomitant]
     Indication: Infection prophylaxis
     Dosage: VIAL
     Route: 042
     Dates: start: 20240920, end: 20240926
  39. MECKOOL [Concomitant]
     Indication: Prophylaxis of nausea and vomiting
     Dosage: AMPULE
     Route: 042
     Dates: start: 20240921, end: 20240922
  40. MECKOOL [Concomitant]
     Route: 042
     Dates: start: 20240926, end: 20240926
  41. DIMETHICONE\PANCRELIPASE\URSODIOL [Concomitant]
     Active Substance: DIMETHICONE\PANCRELIPASE\URSODIOL
     Indication: Prophylaxis
     Route: 048
     Dates: start: 20240922, end: 20240922
  42. DIMETHICONE\PANCRELIPASE\URSODIOL [Concomitant]
     Active Substance: DIMETHICONE\PANCRELIPASE\URSODIOL
     Route: 048
     Dates: start: 20240928
  43. LACTICARE-HC [Concomitant]
     Indication: Prophylaxis
     Dosage: 1%, BOTTLE, 1.18G/118ML, DERMAL
     Route: 050
     Dates: start: 20240925, end: 20241007
  44. NEURONTIN [Concomitant]
     Active Substance: GABAPENTIN
     Indication: Cerebral infarction
     Route: 048
     Dates: start: 20241002, end: 20241101
  45. TACENOL [Concomitant]
     Indication: Pain prophylaxis
     Route: 048
     Dates: start: 20241008, end: 20241012
  46. TACENOL 8HOURS ER [Concomitant]
     Indication: Pain prophylaxis
     Route: 048
     Dates: start: 20241008
  47. TACENOL 8HOURS ER [Concomitant]
     Route: 048
     Dates: start: 20241019
  48. AVELOX [Concomitant]
     Active Substance: MOXIFLOXACIN HYDROCHLORIDE
     Indication: Prophylaxis
     Route: 048
     Dates: start: 20241024, end: 20241113
  49. NEWRICA [Concomitant]
     Indication: Neuropathy peripheral
     Route: 048
     Dates: start: 20231004, end: 20240919

REACTIONS (13)
  - Pyrexia [Recovered/Resolved]
  - Neuropathy peripheral [Recovering/Resolving]
  - Hypoalbuminaemia [Recovered/Resolved]
  - Pain [Recovered/Resolved]
  - Thrombocytopenia [Recovered/Resolved]
  - Aspartate aminotransferase increased [Recovered/Resolved]
  - Pyrexia [Recovered/Resolved]
  - Alanine aminotransferase increased [Recovered/Resolved]
  - Pyrexia [Recovered/Resolved]
  - Constipation [Recovered/Resolved]
  - Asthenia [Recovered/Resolved]
  - Tremor [Recovering/Resolving]
  - Gastrooesophageal reflux disease [Recovering/Resolving]

NARRATIVE: CASE EVENT DATE: 20240911
